FAERS Safety Report 4646529-2 (Version None)
Quarter: 2005Q2

REPORT INFORMATION
  Report Type: 
  Country: None (occurrence: None)
  Receive Date: 20050427
  Receipt Date: 20040907
  Transmission Date: 20051028
  Serious: No
  Sender: FDA-Public Use
  Company Number: US-GLAXOSMITHKLINE-A0524759A

PATIENT
  Age: 68 Year
  Sex: Female

DRUGS (7)
  1. FLOVENT [Suspect]
     Indication: ILL-DEFINED DISORDER
     Dosage: 330MCG TWICE PER DAY
     Route: 055
     Dates: start: 20040501
  2. COZAAR [Concomitant]
  3. ATENOLOL [Concomitant]
  4. LASIX [Concomitant]
  5. ALLEGRA [Concomitant]
  6. COUMADIN [Concomitant]
  7. ALBUTEROL [Concomitant]

REACTIONS (2)
  - DRUG INEFFECTIVE [None]
  - PHARMACEUTICAL PRODUCT COMPLAINT [None]
